FAERS Safety Report 5622560-5 (Version None)
Quarter: 2008Q1

REPORT INFORMATION
  Report Type: 
  Country: None (occurrence: None)
  Receive Date: 20080114
  Receipt Date: 20071024
  Transmission Date: 20080703
  Serious: Yes (Other)
  Sender: FDA-Public Use
  Company Number: A03200706158

PATIENT

DRUGS (3)
  1. PLAVIX [Suspect]
     Dosage: ORAL
     Route: 048
  2. ASPIRIN [Suspect]
  3. COUMADIN [Suspect]

REACTIONS (2)
  - DRUG RESISTANCE [None]
  - STENT OCCLUSION [None]
